FAERS Safety Report 4564556-0 (Version None)
Quarter: 2005Q1

REPORT INFORMATION
  Report Type: 
  Country: None (occurrence: None)
  Receive Date: 20050126
  Receipt Date: 20050107
  Transmission Date: 20050727
  Serious: Yes (Hospitalization)
  Sender: FDA-Public Use
  Company Number: WAES 0501GBR00078

PATIENT
  Age: 76 Year
  Sex: Male

DRUGS (5)
  1. VIOXX [Suspect]
     Indication: NEOPLASM PROPHYLAXIS
     Dosage: 25 MG/DAILY
     Route: 048
     Dates: start: 20040615, end: 20041001
  2. FOSAMAX [Concomitant]
  3. PROSCAR [Concomitant]
  4. PREDNISOLONE [Concomitant]
  5. TAMSULOSIN HYDROCHLORIDE [Concomitant]

REACTIONS (11)
  - ACTIVATED PARTIAL THROMBOPLASTIN TIME SHORTENED [None]
  - ASTHENIA [None]
  - CAROTID ARTERY STENOSIS [None]
  - DIPLOPIA [None]
  - DIZZINESS [None]
  - HYPERCHOLESTEROLAEMIA [None]
  - LYMPHOCYTE COUNT DECREASED [None]
  - PLATELET COUNT DECREASED [None]
  - RED BLOOD CELL COUNT DECREASED [None]
  - RED BLOOD CELL SEDIMENTATION RATE INCREASED [None]
  - TRANSIENT ISCHAEMIC ATTACK [None]
